FAERS Safety Report 18501757 (Version 2)
Quarter: 2022Q3

REPORT INFORMATION
  Report Type: Report from Study
  Country: CR (occurrence: CR)
  Receive Date: 20201113
  Receipt Date: 20220930
  Transmission Date: 20221027
  Serious: Yes (Hospitalization, Other)
  Sender: FDA-Public Use
  Company Number: CR-NOVARTISPH-NVSC2020CR301692

PATIENT
  Sex: Female

DRUGS (3)
  1. HYDROCHLOROTHIAZIDE\VALSARTAN [Suspect]
     Active Substance: HYDROCHLOROTHIAZIDE\VALSARTAN
     Indication: Hypertension
     Dosage: UNK
     Route: 065
  2. HYDROCHLOROTHIAZIDE\VALSARTAN [Suspect]
     Active Substance: HYDROCHLOROTHIAZIDE\VALSARTAN
     Dosage: 1 DOSAGE FORM, QD (80/12.5MG)
     Route: 048
     Dates: start: 2016, end: 2019
  3. HYDROCHLOROTHIAZIDE\VALSARTAN [Suspect]
     Active Substance: HYDROCHLOROTHIAZIDE\VALSARTAN
     Dosage: 1 DOSAGE FORM, QD (160/12.5MG)
     Route: 048
     Dates: start: 2019

REACTIONS (8)
  - Pneumonia [Unknown]
  - Overweight [Unknown]
  - Back pain [Unknown]
  - Blood pressure abnormal [Recovered/Resolved]
  - Fall [Unknown]
  - Gait disturbance [Unknown]
  - Hypertension [Unknown]
  - Anger [Unknown]

NARRATIVE: CASE EVENT DATE: 20200101
